FAERS Safety Report 24202139 (Version 1)
Quarter: 2024Q3

REPORT INFORMATION
  Report Type: Spontaneous
  Country: US (occurrence: US)
  Receive Date: 20240812
  Receipt Date: 20240812
  Transmission Date: 20241017
  Serious: No
  Sender: SUNOVION
  Company Number: US-SMPA-2024SPA000669

PATIENT

DRUGS (1)
  1. APTIOM [Suspect]
     Active Substance: ESLICARBAZEPINE ACETATE
     Dosage: WAS TAKING APTIOM 200MG AND THEN APTIOM 400MG AND NOW APTIOM 600MG
     Route: 048

REACTIONS (2)
  - Amnesia [Unknown]
  - Underdose [Unknown]
